FAERS Safety Report 7956366-9 (Version None)
Quarter: 2011Q4

REPORT INFORMATION
  Report Type: 
  Country: None (occurrence: None)
  Receive Date: 20111205
  Receipt Date: 20111122
  Transmission Date: 20120403
  Serious: Yes (Hospitalization, Other)
  Sender: FDA-Public Use
  Company Number: JP-PFIZER INC-2011233593

PATIENT
  Age: 85 Year
  Sex: Female
  Weight: 36.3 kg

DRUGS (12)
  1. ADALAT [Concomitant]
     Dosage: UNK
     Dates: start: 20091023, end: 20091225
  2. LEFTOSE [Concomitant]
     Dosage: UNK
     Route: 048
  3. CLONAZEPAM [Concomitant]
     Dosage: UNK
     Route: 048
     Dates: start: 20061228, end: 20091225
  4. TOLEDOMIN [Concomitant]
     Dosage: UNK
     Route: 048
     Dates: start: 20070315, end: 20091225
  5. MUCODYNE [Concomitant]
     Dosage: UNK
     Route: 048
  6. EVAMYL [Concomitant]
     Dosage: UNK
     Route: 048
     Dates: start: 19990301, end: 20091225
  7. ARICEPT [Concomitant]
     Dosage: UNK
     Route: 048
     Dates: start: 20080118, end: 20091225
  8. REMODELLIN [Concomitant]
     Dosage: UNK
     Route: 048
     Dates: start: 20090108, end: 20091226
  9. EVISTA [Concomitant]
     Dosage: UNK
     Route: 048
     Dates: start: 20061209, end: 20091225
  10. CELECOXIB [Suspect]
     Indication: OSTEOARTHRITIS
     Dosage: 100 MG, 2X/DAY
     Route: 048
     Dates: start: 20080515, end: 20091226
  11. CEFAZOLIN SODIUM [Concomitant]
     Dosage: UNK
     Route: 048
  12. DIOVAN [Concomitant]
     Dosage: UNK
     Route: 048
     Dates: start: 20090703, end: 20091225

REACTIONS (7)
  - GASTRIC ULCER [None]
  - DECREASED APPETITE [None]
  - EPILEPSY [None]
  - ALTERED STATE OF CONSCIOUSNESS [None]
  - DEPRESSED MOOD [None]
  - HYPERTENSION [None]
  - GASTROENTERITIS [None]
